FAERS Safety Report 24415476 (Version 2)
Quarter: 2024Q4

REPORT INFORMATION
  Report Type: Spontaneous
  Country: PT (occurrence: PT)
  Receive Date: 20241009
  Receipt Date: 20241021
  Transmission Date: 20250115
  Serious: Yes (Other)
  Sender: CELLTRION
  Company Number: PL-AMGEN-POLSP2024062999

PATIENT

DRUGS (1)
  1. ADALIMUMAB [Suspect]
     Active Substance: ADALIMUMAB
     Indication: Spondylitis
     Dosage: UNK; ADDITIONAL INFORMATION ON DRUG (FREE TEXT): DOSAGE1: UNIT=NOT AVAILABLE
     Route: 058

REACTIONS (5)
  - Polyarthritis [Not Recovered/Not Resolved]
  - Lymphopenia [Not Recovered/Not Resolved]
  - Systemic lupus erythematosus [Unknown]
  - Lupus-like syndrome [Not Recovered/Not Resolved]
  - Anaemia [Not Recovered/Not Resolved]
